FAERS Safety Report 11736412 (Version 1)
Quarter: 2015Q4

REPORT INFORMATION
  Report Type: Spontaneous
  Country: US (occurrence: US)
  Receive Date: 20151113
  Receipt Date: 20151113
  Transmission Date: 20160304
  Serious: No
  Sender: FDA-Public Use
  Company Number: US-JNJFOC-20151009513

PATIENT
  Age: 4 Decade
  Sex: Female

DRUGS (1)
  1. REMICADE [Suspect]
     Active Substance: INFLIXIMAB
     Indication: COLITIS ULCERATIVE
     Dosage: 12TH INFUSION
     Route: 042

REACTIONS (6)
  - Infusion related reaction [Unknown]
  - Dysgeusia [Unknown]
  - Ear pain [Unknown]
  - Musculoskeletal pain [Unknown]
  - Vision blurred [Recovered/Resolved]
  - Fatigue [Unknown]
